FAERS Safety Report 7119844-0 (Version None)
Quarter: 2010Q4

REPORT INFORMATION
  Report Type: 
  Country: None (occurrence: None)
  Receive Date: 20101123
  Receipt Date: 20100909
  Transmission Date: 20110411
  Serious: No
  Sender: FDA-Public Use
  Company Number: US-BRISTOL-MYERS SQUIBB COMPANY-15278393

PATIENT
  Age: 76 Year
  Sex: Male

DRUGS (5)
  1. ONGLYZA [Suspect]
     Dates: start: 20100413
  2. COUMADIN [Concomitant]
  3. PREDNISONE [Concomitant]
  4. LANTUS [Concomitant]
  5. NOVOLOG [Concomitant]

REACTIONS (1)
  - RASH [None]
